FAERS Safety Report 13256524 (Version 1)
Quarter: 2017Q1

REPORT INFORMATION
  Report Type: Spontaneous
  Country: SE (occurrence: SE)
  Receive Date: 20170221
  Receipt Date: 20170221
  Transmission Date: 20170428
  Serious: Yes (Hospitalization)
  Sender: FDA-Public Use
  Company Number: SE-PFIZER INC-2017073694

PATIENT
  Age: 68 Year
  Sex: Male

DRUGS (11)
  1. SPIRIVA [Concomitant]
     Active Substance: TIOTROPIUM BROMIDE MONOHYDRATE
     Dosage: UNK
  2. LAMISIL [Concomitant]
     Active Substance: TERBINAFINE HYDROCHLORIDE
     Dosage: UNK
  3. OMEPRAZOL ACTAVIS [Concomitant]
     Active Substance: OMEPRAZOLE
     Dosage: UNK
  4. ORALOVITE [Concomitant]
     Active Substance: ASCORBIC ACID\NIACINAMIDE\PYRIDOXINE\RIBOFLAVIN\THIAMINE
     Dosage: UNK
  5. TAMOXIFEN MYLAN [Concomitant]
     Active Substance: TAMOXIFEN
     Dosage: UNK
  6. ARTELAC /00002701/ [Concomitant]
     Active Substance: ASPIRIN
     Dosage: UNK
  7. XANOR DEPOT [Suspect]
     Active Substance: ALPRAZOLAM
     Indication: ANXIETY
     Dosage: UNK
     Route: 048
     Dates: start: 20150107, end: 20150107
  8. ROHYPNOL [Suspect]
     Active Substance: FLUNITRAZEPAM
     Indication: ANXIETY
     Dosage: UNK
     Route: 048
     Dates: start: 20150107, end: 20150107
  9. ALVEDON [Concomitant]
     Active Substance: ACETAMINOPHEN
     Dosage: UNK
  10. NORSPAN [Concomitant]
     Active Substance: BUPRENORPHINE
     Dosage: UNK
  11. FLUNITRAZEPAM MYLAN [Concomitant]
     Dosage: UNK

REACTIONS (5)
  - Alcohol poisoning [Unknown]
  - Depressed level of consciousness [Unknown]
  - Overdose [Unknown]
  - Toxicity to various agents [Unknown]
  - Suicidal ideation [Unknown]

NARRATIVE: CASE EVENT DATE: 2015
